FAERS Safety Report 17999373 (Version 1)
Quarter: 2020Q3

REPORT INFORMATION
  Report Type: Spontaneous
  Country: US (occurrence: US)
  Receive Date: 20200708
  Receipt Date: 20200708
  Transmission Date: 20201103
  Serious: Yes (Hospitalization)
  Sender: FDA-Public Use
  Company Number: None

PATIENT
  Sex: Female

DRUGS (18)
  1. HYDROCO/APAP [Concomitant]
     Active Substance: ACETAMINOPHEN\HYDROCODONE
  2. FUROSEMIDE. [Concomitant]
     Active Substance: FUROSEMIDE
  3. ONDANSETRON [Concomitant]
     Active Substance: ONDANSETRON
  4. CIPROFLOXACN [Concomitant]
     Active Substance: CIPROFLOXACIN
  5. NP THYROID [Concomitant]
     Active Substance: LEVOTHYROXINE\LIOTHYRONINE
  6. XELJANZ [Suspect]
     Active Substance: TOFACITINIB CITRATE
     Route: 048
     Dates: start: 20180320
  7. AZEL/FLUTIC [Concomitant]
  8. VALACYCLOVIR [Concomitant]
     Active Substance: VALACYCLOVIR HYDROCHLORIDE
  9. DYMISTA [Concomitant]
     Active Substance: AZELASTINE HYDROCHLORIDE\FLUTICASONE PROPIONATE
  10. TRAMADOL. [Concomitant]
     Active Substance: TRAMADOL
  11. ESTRADIOL. [Concomitant]
     Active Substance: ESTRADIOL
  12. TEMAZEPAM. [Concomitant]
     Active Substance: TEMAZEPAM
  13. AMOXICILLIN. [Concomitant]
     Active Substance: AMOXICILLIN
  14. WIXELA INHUB [Concomitant]
     Active Substance: FLUTICASONE PROPIONATE\SALMETEROL XINAFOATE
  15. PREDNISONE. [Concomitant]
     Active Substance: PREDNISONE
  16. OXYCODONE AND ACETAMINOPHEN [Concomitant]
     Active Substance: ACETAMINOPHEN\OXYCODONE HYDROCHLORIDE
  17. PHENAZOPYRID [Concomitant]
  18. NYSTATIN. [Concomitant]
     Active Substance: NYSTATIN

REACTIONS (1)
  - Spinal operation [None]
